FAERS Safety Report 15391476 (Version 1)
Quarter: 2018Q3

REPORT INFORMATION
  Report Type: Spontaneous
  Country: US (occurrence: US)
  Receive Date: 20180910
  Receipt Date: 20180910
  Transmission Date: 20181010
  Serious: Yes (Death)
  Sender: FDA-Public Use
  Company Number: None

PATIENT
  Age: 67 Year
  Sex: Female

DRUGS (8)
  1. IBRANCE [Suspect]
     Active Substance: PALBOCICLIB
     Indication: BREAST CANCER FEMALE
     Route: 048
     Dates: start: 20170705, end: 20180829
  2. LISINOPRIL. [Concomitant]
     Active Substance: LISINOPRIL
  3. KEPPRA [Concomitant]
     Active Substance: LEVETIRACETAM
  4. LETROZOLE 2.5 MG [Suspect]
     Active Substance: LETROZOLE
     Indication: NEOPLASM MALIGNANT
     Route: 048
     Dates: start: 20180124, end: 20180829
  5. OMEPRAZOLE. [Concomitant]
     Active Substance: OMEPRAZOLE
  6. MEGACE [Concomitant]
     Active Substance: MEGESTROL ACETATE
  7. VALIUM [Concomitant]
     Active Substance: DIAZEPAM
  8. VITAMIN D [Concomitant]
     Active Substance: CHOLECALCIFEROL

REACTIONS (1)
  - Death [None]

NARRATIVE: CASE EVENT DATE: 20180101
